FAERS Safety Report 5086077-1 (Version None)
Quarter: 2006Q3

REPORT INFORMATION
  Report Type: 
  Country: None (occurrence: None)
  Receive Date: 20060817
  Receipt Date: 20060811
  Transmission Date: 20061208
  Serious: Yes (Hospitalization)
  Sender: FDA-Public Use
  Company Number: 2006P1000107

PATIENT
  Age: 43 Year
  Sex: Male
  Weight: 76 kg

DRUGS (13)
  1. RETEPLASE ( RETEPLASE) [Suspect]
     Indication: ACUTE MYOCARDIAL INFARCTION
     Dosage: IV
     Route: 042
     Dates: start: 20051129, end: 20051129
  2. REOPRO [Suspect]
     Indication: ACUTE MYOCARDIAL INFARCTION
     Dosage: IV
     Route: 042
     Dates: start: 20051129
  3. ASPIRIN [Concomitant]
  4. CLOPIDOGREL [Concomitant]
  5. SIMVASTATIN [Concomitant]
  6. METOPROLOL TARTRATE [Concomitant]
  7. TRIMETAZIDINE [Concomitant]
  8. DILTIAZEM HCL [Concomitant]
  9. PROPRANOLOL [Concomitant]
  10. PERINDOPRIL ERBUMINE [Concomitant]
  11. ALBUMIN [Concomitant]
  12. METHIOVIT [Concomitant]
  13. .. [Concomitant]

REACTIONS (1)
  - HYPERTHYROIDISM [None]
